FAERS Safety Report 6318221-X (Version None)
Quarter: 2009Q3

REPORT INFORMATION
  Report Type: 
  Country: None (occurrence: None)
  Receive Date: 20090821
  Receipt Date: 20090812
  Transmission Date: 20100115
  Serious: Yes (Hospitalization)
  Sender: FDA-Public Use
  Company Number: NL-CELGENEUS-114-20785-09080860

PATIENT
  Sex: Female

DRUGS (9)
  1. THALIDOMIDE [Suspect]
     Indication: MULTIPLE MYELOMA
     Route: 048
     Dates: start: 20090707, end: 20090710
  2. THALIDOMIDE [Suspect]
     Route: 048
     Dates: start: 20090525
  3. DEXAMETHASONE [Suspect]
     Indication: MULTIPLE MYELOMA
     Route: 048
     Dates: start: 20090707, end: 20090710
  4. DEXAMETHASONE [Suspect]
     Route: 048
     Dates: start: 20090525
  5. DOXORUBICIN HCL [Suspect]
     Indication: MULTIPLE MYELOMA
     Route: 051
     Dates: start: 20090707, end: 20090710
  6. DOXORUBICIN HCL [Suspect]
     Route: 051
     Dates: start: 20090525
  7. MEDROL [Concomitant]
     Indication: DRUG USE FOR UNKNOWN INDICATION
     Route: 048
     Dates: start: 20071019
  8. ACTONEL [Concomitant]
     Indication: DRUG USE FOR UNKNOWN INDICATION
     Route: 048
     Dates: start: 20040712
  9. ASPIRIN [Concomitant]
     Indication: DRUG USE FOR UNKNOWN INDICATION
     Route: 048
     Dates: start: 20090525

REACTIONS (1)
  - DIVERTICULAR PERFORATION [None]
